FAERS Safety Report 9842944 (Version 3)
Quarter: 2014Q1

REPORT INFORMATION
  Report Type: Report from Study
  Country: ES (occurrence: ES)
  Receive Date: 20140124
  Receipt Date: 20140225
  Transmission Date: 20141002
  Serious: Yes (Other)
  Sender: FDA-Public Use
  Company Number: ES-TEVA-458301USA

PATIENT
  Age: 64 Year
  Sex: Male
  Weight: 73 kg

DRUGS (6)
  1. BENDAMUSTINE [Suspect]
     Indication: PLASMA CELL MYELOMA
     Dosage: CYCLIC
     Route: 042
     Dates: start: 20120709, end: 20121003
  2. BENDAMUSTINE [Suspect]
     Indication: PLASMA CELL MYELOMA
     Dosage: CYCLIC
     Route: 042
     Dates: end: 20121119
  3. VELCADE [Suspect]
     Indication: PLASMA CELL MYELOMA
     Route: 042
     Dates: start: 20120709, end: 20121017
  4. VELCADE [Suspect]
     Indication: PLASMA CELL MYELOMA
     Route: 042
     Dates: end: 20121203
  5. PREDNISONE [Suspect]
     Indication: PLASMA CELL MYELOMA
     Route: 048
     Dates: start: 20120709, end: 20120929
  6. PREDNISONE [Suspect]
     Indication: PLASMA CELL MYELOMA
     Route: 048
     Dates: end: 20121115

REACTIONS (1)
  - Blood stem cell harvest failure [Recovered/Resolved]
